FAERS Safety Report 4754108-1 (Version None)
Quarter: 2005Q3

REPORT INFORMATION
  Report Type: 
  Country: None (occurrence: None)
  Receive Date: 20050826
  Receipt Date: 20050712
  Transmission Date: 20060218
  Serious: Yes (Death, Hospitalization, Other)
  Sender: FDA-Public Use
  Company Number: US-MERCK-0507USA01650

PATIENT
  Age: 82 Year
  Sex: Female
  Weight: 68 kg

DRUGS (10)
  1. VIOXX [Suspect]
     Indication: ARTHRITIS
     Route: 048
     Dates: start: 19990101, end: 20020720
  2. LASIX [Concomitant]
     Route: 065
  3. ACIPHEX [Concomitant]
     Route: 065
  4. DOCUSATE SODIUM [Concomitant]
     Route: 065
  5. COUMADIN [Concomitant]
     Route: 065
  6. DESONIDE [Concomitant]
     Route: 065
  7. PERIACTIN [Concomitant]
     Route: 065
  8. MACROBID [Concomitant]
     Route: 065
  9. TEMAZEPAM [Concomitant]
     Route: 065
  10. PREDNISONE [Concomitant]
     Route: 065

REACTIONS (5)
  - CARDIAC FAILURE CONGESTIVE [None]
  - CHEST PAIN [None]
  - LYMPHOMA [None]
  - MYOCARDIAL INFARCTION [None]
  - PULMONARY EMBOLISM [None]
